FAERS Safety Report 7365805-6 (Version None)
Quarter: 2011Q1

REPORT INFORMATION
  Report Type: 
  Country: None (occurrence: None)
  Receive Date: 20110309
  Receipt Date: 20110221
  Transmission Date: 20110831
  Serious: Yes (Death)
  Sender: FDA-Public Use
  Company Number: 2011SP009492

PATIENT
  Age: 39 Year
  Sex: Male

DRUGS (4)
  1. HEPARIN SODIUM [Suspect]
     Indication: HAEMODIALYSIS
  2. ETOPOSIDE [Concomitant]
  3. IFOSFAMIDE [Concomitant]
  4. CARBOPLATIN [Concomitant]

REACTIONS (9)
  - HYPERTENSION [None]
  - RENAL FAILURE [None]
  - THROMBOCYTOPENIA [None]
  - SUBARACHNOID HAEMORRHAGE [None]
  - HAEMORRHAGE INTRACRANIAL [None]
  - SOMNOLENCE [None]
  - CEREBRAL HAEMORRHAGE [None]
  - HEADACHE [None]
  - RENAL TUBULAR DISORDER [None]
